FAERS Safety Report 21660980 (Version 2)
Quarter: 2022Q4

REPORT INFORMATION
  Report Type: Spontaneous
  Country: US (occurrence: US)
  Receive Date: 20221130
  Receipt Date: 20221202
  Transmission Date: 20230113
  Serious: No
  Sender: FDA-Public Use
  Company Number: US-002147023-NVSC2022US277471

PATIENT
  Sex: Female

DRUGS (1)
  1. POLYMYXIN B SULFATE\TRIMETHOPRIM [Suspect]
     Active Substance: POLYMYXIN B SULFATE\TRIMETHOPRIM
     Indication: Corneal abrasion
     Dosage: UNK (STRENGTH 1%/ POLYMYXIN B 10ML LDP) (6X A DAY FOR 10 DAYS)
     Route: 065

REACTIONS (3)
  - Eye pruritus [Unknown]
  - Eye discharge [Unknown]
  - Eye pain [Unknown]
